FAERS Safety Report 20199459 (Version 2)
Quarter: 2022Q4

REPORT INFORMATION
  Report Type: Spontaneous
  Country: JP (occurrence: JP)
  Receive Date: 20211217
  Receipt Date: 20221012
  Transmission Date: 20230113
  Serious: Yes (Other)
  Sender: FDA-Public Use
  Company Number: JP-SYMBIO-202100494

PATIENT
  Age: 62 Year
  Sex: Male
  Weight: 66 kg

DRUGS (14)
  1. BENDAMUSTINE HYDROCHLORIDE [Suspect]
     Active Substance: BENDAMUSTINE HYDROCHLORIDE
     Indication: B-cell lymphoma recurrent
     Dosage: 90 MG/M2 DAILY;
     Route: 041
     Dates: start: 20181015, end: 20181016
  2. BENDAMUSTINE HYDROCHLORIDE [Suspect]
     Active Substance: BENDAMUSTINE HYDROCHLORIDE
     Dosage: 90 MG/M2 DAILY;
     Route: 041
     Dates: start: 20181121, end: 20181122
  3. BENDAMUSTINE HYDROCHLORIDE [Suspect]
     Active Substance: BENDAMUSTINE HYDROCHLORIDE
     Dosage: 60 MG/M2 DAILY;
     Route: 041
     Dates: start: 20181219, end: 20181220
  4. BENDAMUSTINE HYDROCHLORIDE [Suspect]
     Active Substance: BENDAMUSTINE HYDROCHLORIDE
     Dosage: 60 MG/M2 DAILY;
     Route: 041
     Dates: start: 20190213, end: 20190214
  5. GAZYVA [Suspect]
     Active Substance: OBINUTUZUMAB
     Indication: B-cell lymphoma recurrent
     Dosage: 1000 MILLIGRAM DAILY;
     Route: 041
     Dates: start: 20181022, end: 20181022
  6. GAZYVA [Suspect]
     Active Substance: OBINUTUZUMAB
     Dosage: 1000 MILLIGRAM DAILY;
     Route: 041
     Dates: start: 20181030, end: 20181030
  7. GAZYVA [Suspect]
     Active Substance: OBINUTUZUMAB
     Dosage: 1000 MILLIGRAM DAILY;
     Route: 041
     Dates: start: 20181120, end: 20181120
  8. GAZYVA [Suspect]
     Active Substance: OBINUTUZUMAB
     Dosage: 1000 MILLIGRAM DAILY;
     Route: 041
     Dates: start: 20181218, end: 20181218
  9. GAZYVA [Suspect]
     Active Substance: OBINUTUZUMAB
     Dosage: 1000 MILLIGRAM DAILY;
     Route: 041
     Dates: start: 20190212, end: 20190212
  10. FLUCONAZOLE [Concomitant]
     Active Substance: FLUCONAZOLE
     Indication: Prophylaxis
     Dosage: 100 MILLIGRAM DAILY;
     Route: 048
     Dates: start: 20181015, end: 20190709
  11. ACYCLOVIR [Concomitant]
     Active Substance: ACYCLOVIR
     Indication: Prophylaxis
     Dosage: 85.7143 MILLIGRAM DAILY;
     Route: 048
     Dates: start: 20181015
  12. LANSOPRAZOLE [Concomitant]
     Active Substance: LANSOPRAZOLE
     Indication: Prophylaxis
     Dosage: 15 MILLIGRAM DAILY;
     Route: 048
     Dates: start: 20181015
  13. FEBUXOSTAT [Concomitant]
     Active Substance: FEBUXOSTAT
     Indication: Prophylaxis
     Dosage: 20 MILLIGRAM DAILY;
     Route: 048
     Dates: start: 20181015, end: 20190709
  14. PENTAMIDINE ISETHIONATE [Concomitant]
     Active Substance: PENTAMIDINE ISETHIONATE
     Indication: Prophylaxis
     Dosage: 10 MILLIGRAM DAILY;
     Route: 048
     Dates: start: 20181015, end: 20200709

REACTIONS (1)
  - Thrombocytopenia [Recovering/Resolving]

NARRATIVE: CASE EVENT DATE: 20181120
